FAERS Safety Report 21399335 (Version 1)
Quarter: 2022Q4

REPORT INFORMATION
  Report Type: Report from Study
  Country: US (occurrence: US)
  Receive Date: 20221001
  Receipt Date: 20221001
  Transmission Date: 20230113
  Serious: No
  Sender: FDA-Public Use
  Company Number: US-ABBVIE-4131063

PATIENT
  Age: 57 Year
  Sex: Male

DRUGS (8)
  1. SKYRIZI [Suspect]
     Active Substance: RISANKIZUMAB-RZAA
     Indication: Major depression
     Dosage: WEEK 0
     Route: 058
  2. VALSARTAN [Concomitant]
     Active Substance: VALSARTAN
     Indication: Product used for unknown indication
     Route: 048
  3. TAMSULOSIN H 0.4MG [Concomitant]
     Indication: Product used for unknown indication
     Route: 048
  4. TRINTELLIX TAB 20MG [Concomitant]
     Indication: Product used for unknown indication
  5. ATORVASTATIN [Concomitant]
     Active Substance: ATORVASTATIN
     Indication: Product used for unknown indication
     Route: 048
  6. CLOBETASOL PROPIONATE [Concomitant]
     Active Substance: CLOBETASOL PROPIONATE
     Indication: Product used for unknown indication
  7. ESCITALOPRAM OXALATE [Concomitant]
     Active Substance: ESCITALOPRAM OXALATE
     Indication: Product used for unknown indication
     Route: 048
  8. BUPROPION HCL 300MG XL [Concomitant]
     Indication: Product used for unknown indication
     Route: 048

REACTIONS (2)
  - Hypotension [Recovered/Resolved]
  - Blood cholesterol decreased [Recovered/Resolved]

NARRATIVE: CASE EVENT DATE: 20220801
